FAERS Safety Report 8077917-2 (Version None)
Quarter: 2012Q1

REPORT INFORMATION
  Report Type: 
  Country: None (occurrence: None)
  Receive Date: 20120127
  Receipt Date: 20110308
  Transmission Date: 20120608
  Serious: No
  Sender: FDA-Public Use
  Company Number: US-ABBOTT-11P-163-0695312-00

PATIENT
  Age: 57 Year
  Sex: Female

DRUGS (14)
  1. FIORICET [Concomitant]
     Indication: PRODUCT USED FOR UNKNOWN INDICATION
  2. ZOLOFT [Concomitant]
     Indication: DEPRESSION
  3. XANAX [Concomitant]
     Indication: ANXIETY
  4. SEROQUEL [Concomitant]
     Indication: INSOMNIA
     Dosage: AT HS
  5. SKELAXIN [Concomitant]
     Indication: PAIN
     Dosage: DOSE NOT AVAILABLE; AS NEEDED
  6. HUMIRA [Suspect]
     Indication: RHEUMATOID ARTHRITIS
     Dates: start: 20070301
  7. LORTAB [Concomitant]
     Indication: PAIN
     Route: 048
  8. DARVOCET-N 50 [Concomitant]
     Indication: PAIN
     Dosage: N 100 AS NEEDED
     Route: 048
  9. PLAVIX [Concomitant]
     Indication: PRODUCT USED FOR UNKNOWN INDICATION
  10. PREVACID [Concomitant]
     Indication: GASTROOESOPHAGEAL REFLUX DISEASE
  11. PLAQUENIL [Concomitant]
     Indication: PRODUCT USED FOR UNKNOWN INDICATION
  12. FOSAMAX [Concomitant]
     Indication: PRODUCT USED FOR UNKNOWN INDICATION
  13. TOPROL-XL [Concomitant]
     Indication: HYPERTENSION
  14. ACCUPRIL [Concomitant]
     Indication: PRODUCT USED FOR UNKNOWN INDICATION

REACTIONS (17)
  - SINUSITIS [None]
  - PAIN IN EXTREMITY [None]
  - BACTERIAL INFECTION [None]
  - DEHYDRATION [None]
  - PAIN [None]
  - PARAESTHESIA [None]
  - MALAISE [None]
  - CARDIAC STRESS TEST ABNORMAL [None]
  - ULCER [None]
  - BLOOD SODIUM DECREASED [None]
  - ARTHRALGIA [None]
  - CONDITION AGGRAVATED [None]
  - CHEST PAIN [None]
  - NEOPLASM MALIGNANT [None]
  - MUSCULOSKELETAL STIFFNESS [None]
  - NAUSEA [None]
  - BLOOD PRESSURE INCREASED [None]
